FAERS Safety Report 5403651-0 (Version None)
Quarter: 2007Q3

REPORT INFORMATION
  Report Type: 
  Country: None (occurrence: None)
  Receive Date: 20070802
  Receipt Date: 20070724
  Transmission Date: 20080115
  Serious: Yes (Hospitalization)
  Sender: FDA-Public Use
  Company Number: PHHO2006IT14125

PATIENT
  Age: 66 Year
  Sex: Female
  Weight: 75 kg

DRUGS (1)
  1. TAMOXIFEN CITRATE [Suspect]
     Indication: BREAST CANCER
     Dosage: DOUBLE BLIND
     Route: 048
     Dates: start: 20020505, end: 20050802

REACTIONS (2)
  - ENDOCERVICAL CURETTAGE [None]
  - UTERINE POLYP [None]
